FAERS Safety Report 25703346 (Version 1)
Quarter: 2025Q3

REPORT INFORMATION
  Report Type: Spontaneous
  Country: US (occurrence: US)
  Receive Date: 20250820
  Receipt Date: 20250820
  Transmission Date: 20251021
  Serious: No
  Sender: ROCHE
  Company Number: US-ROCHE-10000363706

PATIENT
  Age: 62 Year
  Sex: Female
  Weight: 124.73 kg

DRUGS (6)
  1. ESBRIET [Suspect]
     Active Substance: PIRFENIDONE
     Indication: Pulmonary fibrosis
     Dosage: WITH FOOD IN THE MORNING, BEFORE EATING LUNCH
     Route: 048
     Dates: start: 202408
  2. PIRFENIDONE [Suspect]
     Active Substance: PIRFENIDONE
     Indication: Pulmonary fibrosis
     Dosage: WITH FOOD
     Route: 048
     Dates: start: 202412, end: 202501
  3. LISINOPRIL [Concomitant]
     Active Substance: LISINOPRIL
     Indication: Blood pressure measurement
     Route: 048
     Dates: start: 2020
  4. JENTADUETO [Concomitant]
     Active Substance: LINAGLIPTIN\METFORMIN HYDROCHLORIDE
     Dosage: 2.5/10000 ONE IN THE MORNING AND ONE AT NIGHT
     Route: 048
     Dates: start: 2021
  5. LANTUS [Concomitant]
     Active Substance: INSULIN GLARGINE
     Dosage: AT 9 AT NIGHT EVERY DAY
     Route: 058
     Dates: start: 2021
  6. ATORVASTATIN [Concomitant]
     Active Substance: ATORVASTATIN
     Indication: Blood cholesterol
     Route: 048
     Dates: start: 2020

REACTIONS (3)
  - Dysphonia [Not Recovered/Not Resolved]
  - Nausea [Unknown]
  - Dyspnoea [Not Recovered/Not Resolved]

NARRATIVE: CASE EVENT DATE: 20250101
